FAERS Safety Report 12123938 (Version 2)
Quarter: 2016Q1

REPORT INFORMATION
  Report Type: Spontaneous
  Country: JP (occurrence: JP)
  Receive Date: 20160229
  Receipt Date: 20160324
  Transmission Date: 20160526
  Serious: Yes (Hospitalization, Other)
  Sender: FDA-Public Use
  Company Number: JP-009507513-1602JPN012454

PATIENT
  Age: 78 Year

DRUGS (4)
  1. BAKTAR [Suspect]
     Active Substance: SULFAMETHOXAZOLE\TRIMETHOPRIM
     Route: 065
  2. TEMODAL [Suspect]
     Active Substance: TEMOZOLOMIDE
     Dosage: 150 MG/M2, UNK,INITIAL TREATMENT
     Route: 048
     Dates: start: 20150909
  3. TEMODAL [Suspect]
     Active Substance: TEMOZOLOMIDE
     Indication: GLIOBLASTOMA MULTIFORME
     Dosage: 150 MG/M2, UNK,THE FIRST COURSE OF MAINTENANCE THERAPY
     Route: 048
     Dates: start: 20151120
  4. TEMODAL [Suspect]
     Active Substance: TEMOZOLOMIDE
     Dosage: 105 MG/M2, THE SECOND COURSE OF MAINTENANCE THERAPY
     Route: 048

REACTIONS (2)
  - Aplasia pure red cell [Unknown]
  - Neutrophil count decreased [Recovering/Resolving]

NARRATIVE: CASE EVENT DATE: 201602
